FAERS Safety Report 4309485-2 (Version None)
Quarter: 2004Q1

REPORT INFORMATION
  Report Type: 
  Country: None (occurrence: None)
  Receive Date: 20040227
  Receipt Date: 20040122
  Transmission Date: 20041129
  Serious: Yes (Other)
  Sender: FDA-Public Use
  Company Number: PHHO2004NZ01233

PATIENT
  Age: 18 Year
  Sex: Male

DRUGS (5)
  1. CLOZARIL [Suspect]
     Indication: SCHIZOPHRENIA
     Dosage: 275 MG, QD
     Route: 048
     Dates: start: 20040105, end: 20040116
  2. OLANZAPINE [Concomitant]
     Dosage: 7.5 MG, QD
     Dates: start: 20030704, end: 20040113
  3. QUETIAPINE [Concomitant]
     Dosage: 400 MG, BID
     Dates: start: 20030704
  4. QUETIAPINE [Concomitant]
     Dosage: TITRATING DOWN GRADUALLY
  5. QUETIAPINE [Concomitant]
     Dosage: 50 MG, QD
     Dates: end: 20040112

REACTIONS (14)
  - CHEST PAIN [None]
  - DEPRESSED MOOD [None]
  - DIARRHOEA [None]
  - HEADACHE [None]
  - INSOMNIA [None]
  - NAUSEA [None]
  - PHOTOPHOBIA [None]
  - PLEURITIC PAIN [None]
  - PYREXIA [None]
  - RASH [None]
  - RESTLESSNESS [None]
  - SEDATION [None]
  - TACHYCARDIA [None]
  - VOMITING [None]
